FAERS Safety Report 7706288-3 (Version None)
Quarter: 2011Q3

REPORT INFORMATION
  Report Type: 
  Country: None (occurrence: None)
  Receive Date: 20110824
  Receipt Date: 20110818
  Transmission Date: 20111222
  Serious: Yes (Hospitalization)
  Sender: FDA-Public Use
  Company Number: FR-ROCHE-797532

PATIENT
  Sex: Male
  Weight: 2.6 kg

DRUGS (1)
  1. CLONAZEPAM [Suspect]
     Dosage: STRENGTH: 2.5 MG/ML  DROPS TAKEN BY MOTHER
     Route: 063
     Dates: start: 20101109, end: 20110807

REACTIONS (3)
  - HYPOTONIA NEONATAL [None]
  - POOR WEIGHT GAIN NEONATAL [None]
  - POOR SUCKING REFLEX [None]
